FAERS Safety Report 18142602 (Version 3)
Quarter: 2020Q4

REPORT INFORMATION
  Report Type: Spontaneous
  Country: DE (occurrence: DE)
  Receive Date: 20200813
  Receipt Date: 20201222
  Transmission Date: 20210113
  Serious: Yes (Other)
  Sender: FDA-Public Use
  Company Number: DE-REGENERON PHARMACEUTICALS, INC.-2020-69689

PATIENT

DRUGS (2)
  1. EYLEA [Suspect]
     Active Substance: AFLIBERCEPT
     Indication: MACULAR OEDEMA
     Dosage: 0.05 ML, ONCE, SECOND INJECTIONS OF THIS SERIES
     Route: 031
     Dates: start: 20200728, end: 20200728
  2. EYLEA [Suspect]
     Active Substance: AFLIBERCEPT
     Indication: RETINAL VEIN OCCLUSION

REACTIONS (6)
  - Chromatopsia [Recovered/Resolved]
  - Intraocular pressure increased [Recovered/Resolved]
  - Device use issue [Unknown]
  - Vision blurred [Recovered/Resolved]
  - Incorrect dose administered [Unknown]
  - Amaurosis fugax [Recovered/Resolved]

NARRATIVE: CASE EVENT DATE: 20200728
